FAERS Safety Report 6219498 (Version 5)
Quarter: 2017Q1

REPORT INFORMATION
  Report Type: Spontaneous
  Country: JP (occurrence: JP)
  Receive Date: 20070122
  Receipt Date: 20170207
  Transmission Date: 20170429
  Serious: Yes (Death, Life-Threatening, Disabling, Other)
  Sender: FDA-Public Use
  Company Number: JP-BRISTOL-MYERS SQUIBB COMPANY-13625744

PATIENT
  Age: 67 Year
  Sex: Female

DRUGS (10)
  1. MAGLAX [Concomitant]
     Active Substance: MAGNESIUM OXIDE
     Indication: PRODUCT USED FOR UNKNOWN INDICATION
     Dosage: 250 MG, TID
     Route: 048
     Dates: start: 20061112, end: 20070108
  2. EURODIN [Concomitant]
     Active Substance: ESTAZOLAM
     Indication: PRODUCT USED FOR UNKNOWN INDICATION
     Dosage: 2 MG, QD
     Route: 048
     Dates: start: 20061007, end: 20070108
  3. BIOFERMIN [Concomitant]
     Active Substance: BACILLUS SUBTILIS\LACTOBACILLUS ACIDOPHILUS\STREPTOCOCCUS FAECAIS
     Indication: PRODUCT USED FOR UNKNOWN INDICATION
     Dosage: 1 DF, TID
     Route: 048
     Dates: start: 20061105, end: 20070108
  4. PARAPLATIN [Suspect]
     Active Substance: CARBOPLATIN
     Indication: UTERINE CANCER
     Dosage: 350 MG, QWK
     Route: 041
     Dates: start: 20061225, end: 20061225
  5. NEUTROGIN [Concomitant]
     Active Substance: LENOGRASTIM
     Indication: PRODUCT USED FOR UNKNOWN INDICATION
     Dosage: 100 MG, QD
     Route: 058
     Dates: start: 20070102, end: 20070103
  6. TAXOL [Suspect]
     Active Substance: PACLITAXEL
     Indication: UTERINE CANCER
     Dosage: 100 MG, QWK
     Route: 041
     Dates: start: 20070101, end: 20070101
  7. GASTER [Concomitant]
     Active Substance: FAMOTIDINE
     Indication: PRODUCT USED FOR UNKNOWN INDICATION
     Dosage: 20 MG, QD
     Route: 042
     Dates: start: 20070103, end: 20070103
  8. DECADRON [Suspect]
     Active Substance: DEXAMETHASONE
     Indication: PREMEDICATION
     Dosage: 12 MG, QD
     Route: 042
     Dates: start: 20070101, end: 20070101
  9. MEROPEN [Concomitant]
     Active Substance: MEROPENEM
     Indication: PRODUCT USED FOR UNKNOWN INDICATION
     Dosage: .5 G, BID
     Route: 041
     Dates: start: 20070102, end: 20070108
  10. DAI-KENCHU-TO [Concomitant]
     Active Substance: MALTOSE
     Indication: PRODUCT USED FOR UNKNOWN INDICATION
     Dosage: 2.5 G, TID
     Route: 048
     Dates: start: 20061012, end: 20070108

REACTIONS (5)
  - Leukopenia [Fatal]
  - Thrombocytopenia [Fatal]
  - Gastrointestinal haemorrhage [Fatal]
  - Renal impairment [Recovered/Resolved]
  - Hepatic function abnormal [Unknown]

NARRATIVE: CASE EVENT DATE: 20061231
